FAERS Safety Report 9885441 (Version 3)
Quarter: 2014Q2

REPORT INFORMATION
  Report Type: Spontaneous
  Country: CA (occurrence: CA)
  Receive Date: 20140210
  Receipt Date: 20140418
  Transmission Date: 20141212
  Serious: Yes (Hospitalization, Other)
  Sender: FDA-Public Use
  Company Number: CA-AMGEN-CANSP2014007989

PATIENT
  Age: 58 Year
  Sex: Female
  Weight: 102 kg

DRUGS (6)
  1. PROLIA [Suspect]
     Indication: OSTEOPOROSIS POSTMENOPAUSAL
     Dosage: 1 UNK, UNK
     Route: 065
     Dates: start: 20130315
  2. LITHIUM [Concomitant]
     Indication: BIPOLAR DISORDER
     Dosage: 600 UNK, UNK
     Route: 048
     Dates: start: 2010
  3. PROZAC [Concomitant]
     Indication: DEPRESSION
     Dosage: 60 UNK, UNK
     Route: 048
     Dates: start: 2010
  4. ELTROXIN [Concomitant]
     Indication: HYPOTHYROIDISM
     Dosage: 0.05 UNK, QD
     Dates: start: 2010
  5. PARIET [Concomitant]
     Indication: GASTROOESOPHAGEAL REFLUX DISEASE
     Dosage: 20 UNK, QD
  6. CLONAZEPAM [Concomitant]
     Dosage: UNK UNK, AS NECESSARY

REACTIONS (2)
  - Fall [Unknown]
  - Humerus fracture [Recovered/Resolved]
